FAERS Safety Report 5991210-0 (Version None)
Quarter: 2008Q4

REPORT INFORMATION
  Report Type: 
  Country: None (occurrence: None)
  Receive Date: 20081211
  Receipt Date: 20081203
  Transmission Date: 20090506
  Serious: Yes (Hospitalization)
  Sender: FDA-Public Use
  Company Number: ZA-ELI_LILLY_AND_COMPANY-ZA200811004805

PATIENT
  Sex: Male
  Weight: 26 kg

DRUGS (3)
  1. STRATTERA [Suspect]
     Indication: ATTENTION DEFICIT/HYPERACTIVITY DISORDER
     Dosage: 40 MG, DAILY (1/D)
     Route: 048
     Dates: start: 20080901, end: 20081116
  2. RITALIN [Concomitant]
     Dosage: UNK, UNKNOWN
     Route: 065
  3. RISPERDAL [Concomitant]
     Dosage: 0.25 MG, EACH EVENING
     Route: 065

REACTIONS (12)
  - ABNORMAL BEHAVIOUR [None]
  - AGGRESSION [None]
  - AGITATION [None]
  - BLOOD CREATINE PHOSPHOKINASE INCREASED [None]
  - BLOOD GLUCOSE INCREASED [None]
  - BLOOD LACTIC ACID INCREASED [None]
  - DYSTONIA [None]
  - MOOD SWINGS [None]
  - PROTEIN TOTAL INCREASED [None]
  - RESTLESSNESS [None]
  - TACHYCARDIA [None]
  - THYROXINE INCREASED [None]
